FAERS Safety Report 13763511 (Version 1)
Quarter: 2017Q3

REPORT INFORMATION
  Report Type: Spontaneous
  Country: JP (occurrence: JP)
  Receive Date: 20170718
  Receipt Date: 20170718
  Transmission Date: 20171127
  Serious: Yes (Other)
  Sender: FDA-Public Use
  Company Number: JP-GLAXOSMITHKLINE-JP2017JPN107187

PATIENT
  Age: 80 Year
  Sex: Female

DRUGS (4)
  1. MAO-BUSHI-SAISHIN-TO [Concomitant]
     Active Substance: HERBALS
     Dosage: UNK, PRN
  2. RELVAR ELLIPTA [Suspect]
     Active Substance: FLUTICASONE FUROATE\VILANTEROL TRIFENATATE
     Dosage: UNK ?G, UNK
     Route: 055
  3. ATARAX TABLET (HYDROXYZINE HYDROCHLORIDE) [Concomitant]
     Dosage: UNK, PRN
  4. ALLEGRA [Concomitant]
     Active Substance: FEXOFENADINE HYDROCHLORIDE
     Dosage: UNK

REACTIONS (4)
  - Back pain [Unknown]
  - Oral mucosal erythema [Not Recovered/Not Resolved]
  - Spinal fracture [Unknown]
  - Stomatitis [Not Recovered/Not Resolved]
